FAERS Safety Report 6758508-X (Version None)
Quarter: 2010Q2

REPORT INFORMATION
  Report Type: 
  Country: None (occurrence: None)
  Receive Date: 20100607
  Receipt Date: 20100528
  Transmission Date: 20101027
  Serious: Yes (Other)
  Sender: FDA-Public Use
  Company Number: B0632243A

PATIENT
  Sex: Female

DRUGS (4)
  1. VENTOLIN DISKUS [Suspect]
     Indication: DRUG USE FOR UNKNOWN INDICATION
     Route: 065
     Dates: start: 20080101
  2. SPIRIVA [Concomitant]
     Indication: DRUG USE FOR UNKNOWN INDICATION
     Route: 065
  3. BRICANYL [Concomitant]
  4. ATROVENT [Concomitant]

REACTIONS (10)
  - ANGIOEDEMA [None]
  - DYSPNOEA [None]
  - ECZEMA [None]
  - EYE SWELLING [None]
  - ILL-DEFINED DISORDER [None]
  - LIP SWELLING [None]
  - LOCAL SWELLING [None]
  - OROPHARYNGEAL PAIN [None]
  - PHARYNGEAL OEDEMA [None]
  - TONGUE COATED [None]
